FAERS Safety Report 12953051 (Version 2)
Quarter: 2016Q4

REPORT INFORMATION
  Report Type: Spontaneous
  Country: IT (occurrence: IT)
  Receive Date: 20161117
  Receipt Date: 20161129
  Transmission Date: 20170207
  Serious: Yes (Death, Other)
  Sender: FDA-Public Use
  Company Number: IT-ROCHE-1852186

PATIENT
  Age: 94 Year
  Sex: Male

DRUGS (2)
  1. ROCEFIN [Suspect]
     Active Substance: CEFTRIAXONE SODIUM
     Indication: PYREXIA
  2. ROCEFIN [Suspect]
     Active Substance: CEFTRIAXONE SODIUM
     Indication: INFECTION
     Dosage: FOR 7 DAYS
     Route: 030
     Dates: start: 20161107

REACTIONS (2)
  - General physical health deterioration [Fatal]
  - Diarrhoea [Recovering/Resolving]
